FAERS Safety Report 18573692 (Version 1)
Quarter: 2020Q4

REPORT INFORMATION
  Report Type: Spontaneous
  Country: US (occurrence: US)
  Receive Date: 20201202
  Receipt Date: 20201202
  Transmission Date: 20210114
  Serious: Yes (Hospitalization)
  Sender: FDA-Public Use
  Company Number: None

PATIENT
  Age: 60 Year

DRUGS (1)
  1. BENAZEPRIL (BENAZEPRIL HCL 40MG TAB) [Suspect]
     Active Substance: BENAZEPRIL HYDROCHLORIDE
     Indication: HYPERTENSION
     Dates: end: 20201013

REACTIONS (1)
  - Angioedema [None]

NARRATIVE: CASE EVENT DATE: 20201013
